FAERS Safety Report 9121926 (Version 2)
Quarter: 2013Q1

REPORT INFORMATION
  Report Type: Spontaneous
  Country: US (occurrence: US)
  Receive Date: 20130114
  Receipt Date: 20130325
  Transmission Date: 20140127
  Serious: No
  Sender: FDA-Public Use
  Company Number: US-PFIZER INC-2013011537

PATIENT
  Age: 1 Year
  Sex: Male
  Weight: 12.2 kg

DRUGS (3)
  1. GENOTROPIN MQ [Suspect]
     Indication: FAILURE TO THRIVE
     Dosage: 0.4 MG, 1X/DAY
     Dates: start: 20120104
  2. SYNTHROID [Concomitant]
     Indication: THYROID DISORDER
     Dosage: UNK
  3. HYDROCORTISONE [Concomitant]
     Indication: HYPOTHALAMO-PITUITARY DISORDER

REACTIONS (1)
  - Diarrhoea [Not Recovered/Not Resolved]
